FAERS Safety Report 5915948-6 (Version None)
Quarter: 2008Q4

REPORT INFORMATION
  Report Type: 
  Country: None (occurrence: None)
  Receive Date: 20081010
  Receipt Date: 20081007
  Transmission Date: 20090506
  Serious: Yes (Death, Hospitalization)
  Sender: FDA-Public Use
  Company Number: US-GILEAD-2008-0018339

PATIENT
  Sex: Female
  Weight: 48.578 kg

DRUGS (18)
  1. LETAIRIS [Suspect]
     Indication: PULMONARY ARTERIAL HYPERTENSION
     Route: 048
     Dates: start: 20071020, end: 20080927
  2. TYLENOL (CAPLET) [Concomitant]
     Route: 048
  3. COUMADIN [Concomitant]
     Route: 048
  4. BENADRYL [Concomitant]
     Route: 048
  5. XANAX [Concomitant]
     Route: 048
  6. LASIX [Concomitant]
     Route: 048
  7. LEVOTHYROXINE SODIUM [Concomitant]
     Route: 048
  8. DIGOXIN [Concomitant]
     Route: 048
  9. DIGESTIVE ENZYMES [Concomitant]
     Route: 048
  10. AMBIEN [Concomitant]
     Route: 048
  11. IMODIUM A-D [Concomitant]
     Route: 048
  12. NORVASC [Concomitant]
     Route: 048
  13. REVATIO [Concomitant]
     Route: 048
  14. LISINOPRIL [Concomitant]
     Route: 048
  15. ZANTAC [Concomitant]
     Route: 048
  16. DARVOCET [Concomitant]
     Route: 048
  17. CALCIUM [Concomitant]
     Route: 048
  18. PRILOSEC [Concomitant]
     Route: 048

REACTIONS (1)
  - RENAL FAILURE [None]
